FAERS Safety Report 24035817 (Version 6)
Quarter: 2025Q4

REPORT INFORMATION
  Report Type: Report from Study
  Country: EU (occurrence: EU)
  Receive Date: 20240701
  Receipt Date: 20251110
  Transmission Date: 20260117
  Serious: Yes (Hospitalization)
  Sender: EISAI
  Company Number: EU-Eisai-EC-2024-169038

PATIENT
  Age: 36 Year
  Sex: Female
  Weight: 77.00 kg

DRUGS (10)
  1. LENVATINIB [Suspect]
     Active Substance: LENVATINIB
     Indication: Uveal melanoma
     Route: 048
     Dates: start: 20240227, end: 20240809
  2. PEMBROLIZUMAB [Suspect]
     Active Substance: PEMBROLIZUMAB
     Indication: Uveal melanoma
     Dosage: FREQUENCY UNKNOWN
     Route: 042
     Dates: start: 20240227, end: 20240730
  3. FOLLICARE NUTRITIONAL SUPPLEMENT [Concomitant]
  4. MUCOGYNE [Concomitant]
  5. SMECTA [Concomitant]
     Active Substance: MONTMORILLONITE
  6. LOPERAMIDE [Concomitant]
     Active Substance: LOPERAMIDE
  7. RACECADOTRIL [Concomitant]
     Active Substance: RACECADOTRIL
  8. ACUPAN [Concomitant]
     Active Substance: NEFOPAM HYDROCHLORIDE
     Dates: start: 20240613, end: 20240624
  9. IXPRIM [Concomitant]
     Active Substance: ACETAMINOPHEN\TRAMADOL HYDROCHLORIDE
     Dates: start: 20240101, end: 20240612
  10. AMPHOTERICIN B [Concomitant]
     Active Substance: AMPHOTERICIN B
     Dates: start: 20240521, end: 20240604

REACTIONS (2)
  - Posterior reversible encephalopathy syndrome [Recovered/Resolved with Sequelae]
  - Cholecystitis [Recovered/Resolved]

NARRATIVE: CASE EVENT DATE: 20240620
